FAERS Safety Report 22103279 (Version 5)
Quarter: 2023Q2

REPORT INFORMATION
  Report Type: Spontaneous
  Country: US (occurrence: US)
  Receive Date: 20230316
  Receipt Date: 20230615
  Transmission Date: 20230722
  Serious: No
  Sender: FDA-Public Use
  Company Number: US-PFIZER INC-PV202300046895

PATIENT
  Age: 13 Year
  Sex: Male

DRUGS (1)
  1. GENOTROPIN [Suspect]
     Active Substance: SOMATROPIN
     Dosage: 2 MG
     Dates: start: 20230308

REACTIONS (3)
  - Injection site pain [Unknown]
  - Injection site swelling [Recovering/Resolving]
  - Liquid product physical issue [Unknown]

NARRATIVE: CASE EVENT DATE: 20230308
